FAERS Safety Report 10048584 (Version 2)
Quarter: 2014Q1

REPORT INFORMATION
  Report Type: Spontaneous
  Country: US (occurrence: US)
  Receive Date: 20140331
  Receipt Date: 20140331
  Transmission Date: 20141002
  Serious: Yes (Hospitalization, Other)
  Sender: FDA-Public Use
  Company Number: US-CELGENEUS-163-21880-13123799

PATIENT
  Age: 71 Year
  Sex: Male
  Weight: 100.79 kg

DRUGS (8)
  1. REVLIMID [Suspect]
     Indication: PROSTATE CANCER
     Dosage: 25 MILLIGRAM
     Route: 048
     Dates: start: 20130925, end: 20131031
  2. REVLIMID [Suspect]
     Indication: PLASMA CELL MYELOMA
  3. LUPRON [Concomitant]
     Indication: PROSTATE CANCER
     Route: 065
     Dates: start: 201310
  4. METFORMIN [Concomitant]
     Indication: PRODUCT USED FOR UNKNOWN INDICATION
     Dosage: 1000 MILLIGRAM
     Route: 065
     Dates: start: 2012
  5. ENALAPRIL [Concomitant]
     Indication: PRODUCT USED FOR UNKNOWN INDICATION
     Dosage: 25
     Route: 065
     Dates: start: 2004
  6. SIMVASTATIN [Concomitant]
     Indication: PRODUCT USED FOR UNKNOWN INDICATION
     Dosage: 20
     Route: 065
     Dates: start: 2013
  7. NORVASC [Concomitant]
     Indication: PRODUCT USED FOR UNKNOWN INDICATION
     Dosage: 5
     Route: 065
     Dates: start: 2004
  8. SYNTHROID [Concomitant]
     Indication: PRODUCT USED FOR UNKNOWN INDICATION
     Dosage: 50 MICROGRAM
     Route: 065
     Dates: start: 2004

REACTIONS (9)
  - Seizure like phenomena [Unknown]
  - Blood glucose decreased [Unknown]
  - Syncope [Unknown]
  - Upper respiratory tract infection [Unknown]
  - Dizziness [Recovered/Resolved]
  - White blood cell count decreased [Recovering/Resolving]
  - Influenza like illness [Recovered/Resolved]
  - Diplopia [Unknown]
  - Neutrophil count decreased [Unknown]
